FAERS Safety Report 23193447 (Version 2)
Quarter: 2023Q4

REPORT INFORMATION
  Report Type: Other
  Country: US (occurrence: US)
  Receive Date: 20231116
  Receipt Date: 20231120
  Transmission Date: 20240110
  Serious: Yes (Other)
  Sender: FDA-Public Use
  Company Number: US-TRAVERE-2023TVT00681

PATIENT
  Age: 15 Year

DRUGS (7)
  1. FILSPARI [Suspect]
     Active Substance: SPARSENTAN
     Indication: IgA nephropathy
     Route: 048
     Dates: start: 202304
  2. Cytoxan Infusion [Concomitant]
  3. HYDROCHLOROTHIAZIDE [Concomitant]
     Active Substance: HYDROCHLOROTHIAZIDE
  4. LASIX [Concomitant]
     Active Substance: FUROSEMIDE
  5. DILTIAZEM [Concomitant]
     Active Substance: DILTIAZEM
  6. DOXYCYCLINE [Concomitant]
     Active Substance: DOXYCYCLINE
  7. Soliris infusions [Concomitant]

REACTIONS (2)
  - Rhabdomyolysis [Unknown]
  - Product use issue [Unknown]
